FAERS Safety Report 14727439 (Version 1)
Quarter: 2018Q2

REPORT INFORMATION
  Report Type: Spontaneous
  Country: US (occurrence: US)
  Receive Date: 20180406
  Receipt Date: 20180406
  Transmission Date: 20180711
  Serious: Yes (Other)
  Sender: FDA-Public Use
  Company Number: US-AUROBINDO-AUR-APU-2018-016914

PATIENT

DRUGS (2)
  1. LIDOCAINE HYDROCHLORIDE INJECTION USP (AMPULES) 2%(20MG/ML) [Suspect]
     Active Substance: LIDOCAINE HYDROCHLORIDE
     Indication: PRODUCT USED FOR UNKNOWN INDICATION
     Dosage: UNK
     Route: 065
     Dates: start: 20180109
  2. BUPIVACAINE HYDROCHLORIDE 0.75% (7.5 MG/ML) [Suspect]
     Active Substance: BUPIVACAINE HYDROCHLORIDE
     Indication: PRODUCT USED FOR UNKNOWN INDICATION
     Dosage: UNK
     Route: 065
     Dates: start: 20180109

REACTIONS (3)
  - Muscle disorder [Unknown]
  - Ophthalmoplegia [Unknown]
  - Diplopia [Unknown]
